FAERS Safety Report 8367574-X (Version None)
Quarter: 2012Q2

REPORT INFORMATION
  Report Type: 
  Country: None (occurrence: None)
  Receive Date: 20120517
  Receipt Date: 20120515
  Transmission Date: 20120825
  Serious: Yes (Other)
  Sender: FDA-Public Use
  Company Number: US-PFIZER INC-2012090712

PATIENT
  Sex: Female
  Weight: 56.7 kg

DRUGS (4)
  1. LIPITOR [Suspect]
     Dosage: UNK
     Route: 048
  2. CENTRUM SILVER ULTRA WOMEN'S [Suspect]
     Indication: MINERAL SUPPLEMENTATION
  3. CENTRUM SILVER ULTRA WOMEN'S [Suspect]
     Indication: VITAMIN SUPPLEMENTATION
  4. CENTRUM SILVER ULTRA WOMEN'S [Suspect]
     Indication: EATING DISORDER
     Dosage: UNK
     Route: 048
     Dates: start: 20120410

REACTIONS (6)
  - CHOKING [None]
  - NAUSEA [None]
  - DECREASED APPETITE [None]
  - FATIGUE [None]
  - DYSPHAGIA [None]
  - NEOPLASM MALIGNANT [None]
